FAERS Safety Report 7206823-8 (Version None)
Quarter: 2010Q4

REPORT INFORMATION
  Report Type: 
  Country: None (occurrence: None)
  Receive Date: 20101217
  Receipt Date: 20101208
  Transmission Date: 20110411
  Serious: Yes (Death, Hospitalization)
  Sender: FDA-Public Use
  Company Number: 023490

PATIENT
  Sex: Male

DRUGS (2)
  1. KEPPRA [Suspect]
     Dosage: 500 MG BID INTRAVENOUS (NOT OTHERWISE SPECIFIED)
     Route: 042
     Dates: start: 20100625, end: 20100629
  2. NEXIUM [Suspect]
     Dosage: 40 MG QD INTRAVENOUS (NOT OTHERWISE SPECIFIED)
     Route: 042
     Dates: start: 20100625, end: 20100629

REACTIONS (19)
  - ABDOMINAL INJURY [None]
  - ACCIDENT [None]
  - APALLIC SYNDROME [None]
  - AURICULAR HAEMATOMA [None]
  - BLOOD PRESSURE SYSTOLIC INCREASED [None]
  - CEREBRAL HAEMORRHAGE [None]
  - COMA [None]
  - FACE INJURY [None]
  - FLAIL CHEST [None]
  - KLEBSIELLA TEST POSITIVE [None]
  - MEDICAL DEVICE COMPLICATION [None]
  - MIOSIS [None]
  - NASAL SEPTUM DEVIATION [None]
  - PLEURAL EFFUSION [None]
  - PYREXIA [None]
  - RIB FRACTURE [None]
  - SUBARACHNOID HAEMORRHAGE [None]
  - THROMBOCYTOPENIA [None]
  - TRAUMATIC LIVER INJURY [None]
